FAERS Safety Report 6888719-4 (Version None)
Quarter: 2010Q3

REPORT INFORMATION
  Report Type: 
  Country: None (occurrence: None)
  Receive Date: 20100730
  Receipt Date: 20100716
  Transmission Date: 20110219
  Serious: Yes (Hospitalization)
  Sender: FDA-Public Use
  Company Number: NL-AMGEN-US427790

PATIENT
  Age: 64 Year
  Sex: Female

DRUGS (2)
  1. ENBREL [Suspect]
     Indication: RHEUMATOID ARTHRITIS
     Dosage: 50 MG
     Dates: start: 20100601, end: 20100601
  2. ARAVA [Concomitant]

REACTIONS (9)
  - DIZZINESS [None]
  - HYPOPHAGIA [None]
  - MALAISE [None]
  - NAUSEA [None]
  - OEDEMA PERIPHERAL [None]
  - RASH MACULAR [None]
  - SWELLING FACE [None]
  - THERMAL BURN [None]
  - VOMITING [None]
